FAERS Safety Report 17441870 (Version 1)
Quarter: 2020Q1

REPORT INFORMATION
  Report Type: Spontaneous
  Country: DE (occurrence: DE)
  Receive Date: 20200220
  Receipt Date: 20200220
  Transmission Date: 20200409
  Serious: Yes (Life-Threatening, Other)
  Sender: FDA-Public Use
  Company Number: DE-MYLANLABS-12P-062-0959981-00

PATIENT
  Age: 36 Year
  Sex: Female

DRUGS (7)
  1. BIPERIDEN [Suspect]
     Active Substance: BIPERIDEN
     Indication: SCHIZOPHRENIA
     Dosage: 4 MG/D
     Route: 048
  2. DIAZEPAM. [Suspect]
     Active Substance: DIAZEPAM
     Indication: SCHIZOPHRENIA
     Dosage: 20 MG DAILY
     Route: 048
  3. DIAZEPAM. [Suspect]
     Active Substance: DIAZEPAM
     Dosage: BETWEEN 20-30 MG/D
     Route: 048
  4. LEVOMEPROMAZINE [Suspect]
     Active Substance: LEVOMEPROMAZINE
     Indication: SCHIZOPHRENIA
     Dosage: 75 MG/D
     Route: 048
  5. HALOPERIDOL. [Concomitant]
     Active Substance: HALOPERIDOL
     Indication: SCHIZOPHRENIA
     Dosage: 10 MG
  6. DIAZEPAM. [Suspect]
     Active Substance: DIAZEPAM
     Dosage: 30 MG
     Route: 048
  7. BENPERIDOL [Suspect]
     Active Substance: BENPERIDOL
     Indication: SCHIZOPHRENIA
     Dosage: 5 MG/D
     Route: 048

REACTIONS (2)
  - Hypothermia [Recovering/Resolving]
  - Product use in unapproved indication [Recovered/Resolved]
